FAERS Safety Report 23862273 (Version 2)
Quarter: 2024Q2

REPORT INFORMATION
  Report Type: Spontaneous
  Country: AT (occurrence: AT)
  Receive Date: 20240516
  Receipt Date: 20240517
  Transmission Date: 20240715
  Serious: Yes (Hospitalization, Other)
  Sender: FDA-Public Use
  Company Number: AT-ABBVIE-4319383

PATIENT
  Age: 74 Year
  Sex: Male

DRUGS (8)
  1. RINVOQ [Suspect]
     Active Substance: UPADACITINIB
     Indication: Colitis ulcerative
     Route: 048
     Dates: start: 202306, end: 202308
  2. RINVOQ [Suspect]
     Active Substance: UPADACITINIB
     Indication: Colitis ulcerative
     Route: 048
  3. RINVOQ [Suspect]
     Active Substance: UPADACITINIB
     Indication: Colitis ulcerative
     Route: 048
     Dates: start: 202211, end: 202212
  4. RINVOQ [Suspect]
     Active Substance: UPADACITINIB
     Indication: Colitis ulcerative
     Route: 048
     Dates: start: 20230306, end: 202305
  5. RINVOQ [Suspect]
     Active Substance: UPADACITINIB
     Indication: Colitis ulcerative
     Route: 048
     Dates: start: 202209
  6. RINVOQ [Suspect]
     Active Substance: UPADACITINIB
     Indication: Colitis ulcerative
     Route: 048
     Dates: start: 202309
  7. SHINGRIX [Concomitant]
     Active Substance: RECOMBINANT VARICELLA ZOSTER VIRUS (VZV) GLYCOPROTEIN E
     Indication: Product used for unknown indication
     Route: 065
  8. CLARITHROMYCIN [Concomitant]
     Active Substance: CLARITHROMYCIN
     Indication: Product used for unknown indication
     Route: 065

REACTIONS (13)
  - Herpes zoster [Recovered/Resolved]
  - Campylobacter gastroenteritis [Unknown]
  - Faecal calprotectin increased [Recovering/Resolving]
  - Wisdom teeth removal [Unknown]
  - Intentional product misuse [Recovered/Resolved]
  - Coronary artery stenosis [Unknown]
  - Akinesia [Unknown]
  - Left ventricular hypertrophy [Unknown]
  - Angina pectoris [Unknown]
  - Frequent bowel movements [Unknown]
  - Gastrointestinal wall thickening [Unknown]
  - Hypokinesia [Unknown]
  - Colitis [Unknown]

NARRATIVE: CASE EVENT DATE: 20221201
